FAERS Safety Report 12847360 (Version 1)
Quarter: 2016Q4

REPORT INFORMATION
  Report Type: Spontaneous
  Country: US (occurrence: US)
  Receive Date: 20161013
  Receipt Date: 20161013
  Transmission Date: 20170207
  Serious: No
  Sender: FDA-Public Use
  Company Number: None

PATIENT
  Age: 54 Year
  Sex: Male
  Weight: 93.6 kg

DRUGS (1)
  1. TESTOSTERONE CYPIONATE. [Suspect]
     Active Substance: TESTOSTERONE CYPIONATE
     Indication: BLOOD TESTOSTERONE DECREASED
     Dosage: ?          QUANTITY:1 INJECTION(S);OTHER FREQUENCY:TWICE A WEEK;?
     Route: 030

REACTIONS (1)
  - Product contamination microbial [None]

NARRATIVE: CASE EVENT DATE: 20161012
